FAERS Safety Report 8737504 (Version 3)
Quarter: 2013Q4

REPORT INFORMATION
  Report Type: Spontaneous
  Country: JP (occurrence: JP)
  Receive Date: 20120822
  Receipt Date: 20131105
  Transmission Date: 20140711
  Serious: Yes (Death)
  Sender: FDA-Public Use
  Company Number: JP-009507513-1208JPN000840

PATIENT
  Age: 83 Year
  Sex: Male
  Weight: 49 kg

DRUGS (9)
  1. TEMODAL [Suspect]
     Indication: GLIOBLASTOMA MULTIFORME
     Dosage: 42 MG/SQM, ACTUAL DAILY DOSE: 60MG
     Route: 048
     Dates: start: 20110909, end: 20110921
  2. BAKTAR [Suspect]
     Indication: ANTIFUNGAL PROPHYLAXIS
     Dosage: 1 DF, UNK
     Route: 048
     Dates: start: 20110909, end: 20110921
  3. PHENOBAL [Suspect]
     Indication: EPILEPSY
     Dosage: 30 MG, TID
     Route: 048
     Dates: start: 20110816, end: 20110921
  4. PRIMPERAN [Concomitant]
     Indication: PROPHYLAXIS OF NAUSEA AND VOMITING
     Dosage: 5 MG, UNK
     Route: 048
     Dates: start: 20110909, end: 20110929
  5. PREDONINE [Concomitant]
     Indication: BRAIN OEDEMA
     Dosage: 10 MG, QD
     Route: 048
     Dates: start: 20110816, end: 20110925
  6. PREDONINE [Concomitant]
     Dosage: 20 MG, QD, OTHER PURPOSE OF PREDONINE: DRUG ERUPTION
     Dates: start: 20110926, end: 20110929
  7. TAKEPRON [Concomitant]
     Indication: GASTROOESOPHAGEAL REFLUX DISEASE
     Dosage: 15 MG, QD
     Route: 048
     Dates: end: 20110929
  8. ARICEPT D [Concomitant]
     Indication: DEMENTIA
     Dosage: 5 MG, QD
     Route: 048
     Dates: end: 20110929
  9. HARNAL [Concomitant]
     Indication: BENIGN PROSTATIC HYPERPLASIA
     Dosage: 0.2 MG, QD
     Route: 048
     Dates: end: 20110929

REACTIONS (1)
  - Toxic epidermal necrolysis [Fatal]
